FAERS Safety Report 14809515 (Version 1)
Quarter: 2018Q2

REPORT INFORMATION
  Report Type: Spontaneous
  Country: US (occurrence: US)
  Receive Date: 20180425
  Receipt Date: 20180425
  Transmission Date: 20180711
  Serious: Yes (Hospitalization, Other)
  Sender: FDA-Public Use
  Company Number: US-LUNDBECK-DKLU2047575

PATIENT
  Age: 21 Year
  Sex: Male

DRUGS (5)
  1. ONFI [Suspect]
     Active Substance: CLOBAZAM
     Route: 048
     Dates: start: 201804
  2. ONFI [Suspect]
     Active Substance: CLOBAZAM
     Route: 048
     Dates: start: 201804
  3. VALIUM [Concomitant]
     Active Substance: DIAZEPAM
     Indication: MUSCLE SPASMS
     Route: 065
  4. ONFI [Suspect]
     Active Substance: CLOBAZAM
     Indication: SEIZURE
     Route: 048
     Dates: start: 201711
  5. ONFI [Suspect]
     Active Substance: CLOBAZAM
     Route: 048
     Dates: start: 201711

REACTIONS (5)
  - Hypopnoea [Unknown]
  - Hypoaesthesia [Unknown]
  - Drooling [Unknown]
  - Urinary retention [Recovering/Resolving]
  - Unresponsive to stimuli [Unknown]

NARRATIVE: CASE EVENT DATE: 201711
